FAERS Safety Report 21909922 (Version 3)
Quarter: 2023Q1

REPORT INFORMATION
  Report Type: Report from Study
  Country: CA (occurrence: CA)
  Receive Date: 20230125
  Receipt Date: 20230226
  Transmission Date: 20230418
  Serious: Yes (Other)
  Sender: FDA-Public Use
  Company Number: CA-BAYER-2023A009347

PATIENT
  Age: 17 Year
  Sex: Female

DRUGS (1)
  1. MIRENA [Suspect]
     Active Substance: LEVONORGESTREL
     Dosage: 20?G/DAY
     Route: 015
     Dates: start: 20210521, end: 20230131

REACTIONS (5)
  - Device breakage [None]
  - Device dislocation [None]
  - Heavy menstrual bleeding [None]
  - Abdominal pain lower [None]
  - Complication of device removal [None]
